FAERS Safety Report 6335911-3 (Version None)
Quarter: 2009Q3

REPORT INFORMATION
  Report Type: 
  Country: None (occurrence: None)
  Receive Date: 20090826
  Receipt Date: 20090522
  Transmission Date: 20100115
  Serious: No
  Sender: FDA-Public Use
  Company Number: 09-073

PATIENT
  Age: 24 Year
  Sex: Female

DRUGS (1)
  1. PREDNISONE [Suspect]
     Indication: HYPERSENSITIVITY
     Dates: start: 20080801, end: 20090101

REACTIONS (1)
  - CUSHINGOID [None]
